FAERS Safety Report 10754274 (Version 1)
Quarter: 2015Q1

REPORT INFORMATION
  Report Type: Other
  Country: GB (occurrence: GB)
  Receive Date: 20150202
  Receipt Date: 20150202
  Transmission Date: 20150721
  Serious: Yes (Death, Life-Threatening)
  Sender: FDA-Public Use
  Company Number: GB-SUN PHARMACEUTICAL INDUSTRIES LTD-2015SUN00270

PATIENT

DRUGS (12)
  1. OCTREOTIDE ACETATE INJECTION 500MCG [Suspect]
     Active Substance: OCTREOTIDE ACETATE
     Indication: VAGINAL DISCHARGE
     Dosage: 100 ?G, TID
     Route: 058
     Dates: start: 20141023, end: 20141025
  2. CYCLIZINE [Concomitant]
     Active Substance: CYCLIZINE
     Dosage: AS NECESSARY
  3. MORPHINE SULPHATE [Concomitant]
     Active Substance: MORPHINE SULFATE
  4. TRIMETHOPRIM. [Concomitant]
     Active Substance: TRIMETHOPRIM
  5. LEVOTHYROXINE [Concomitant]
     Active Substance: LEVOTHYROXINE
     Dosage: 75 ?G, QD
  6. DEXAMETHASONE. [Concomitant]
     Active Substance: DEXAMETHASONE
  7. LANSOPRAZOLE. [Concomitant]
     Active Substance: LANSOPRAZOLE
     Dosage: 30 MG, QD
  8. PARACETAMOL [Concomitant]
     Active Substance: ACETAMINOPHEN
  9. FUROSEMIDE. [Concomitant]
     Active Substance: FUROSEMIDE
  10. ATORVASTATIN [Concomitant]
     Active Substance: ATORVASTATIN
     Dosage: 20 MG, QD
  11. BISOPROLOL [Concomitant]
     Active Substance: BISOPROLOL
     Dosage: 2.5 MG, QD
  12. CANDESARTAN [Concomitant]
     Active Substance: CANDESARTAN
     Dosage: 16 MG, QD

REACTIONS (6)
  - Cerebral infarction [Fatal]
  - Condition aggravated [Unknown]
  - Transient ischaemic attack [Not Recovered/Not Resolved]
  - Hemiparesis [Not Recovered/Not Resolved]
  - Off label use [Unknown]
  - Vaginal discharge [Unknown]

NARRATIVE: CASE EVENT DATE: 20141024
